FAERS Safety Report 9511530 (Version 3)
Quarter: 2013Q4

REPORT INFORMATION
  Report Type: Spontaneous
  Country: JP (occurrence: JP)
  Receive Date: 20130910
  Receipt Date: 20131004
  Transmission Date: 20140711
  Serious: No
  Sender: FDA-Public Use
  Company Number: JP-JNJFOC-20130817362

PATIENT
  Age: 7 Decade
  Sex: Female

DRUGS (6)
  1. DUROTEP MT [Suspect]
     Indication: CANCER PAIN
     Route: 062
     Dates: start: 201205
  2. DUROTEP MT [Suspect]
     Indication: CANCER PAIN
     Route: 062
     Dates: start: 20120911, end: 20121005
  3. DUROTEP MT [Suspect]
     Indication: CANCER PAIN
     Route: 062
     Dates: start: 201208
  4. DUROTEP MT [Suspect]
     Indication: CANCER PAIN
     Route: 062
     Dates: start: 20121006, end: 20121011
  5. DUROTEP MT [Suspect]
     Indication: CANCER PAIN
     Route: 062
     Dates: start: 201202
  6. DUROTEP MT [Suspect]
     Indication: CANCER PAIN
     Route: 062
     Dates: start: 201210, end: 20121012

REACTIONS (2)
  - Disorientation [Recovered/Resolved]
  - Somnolence [Recovered/Resolved]
